FAERS Safety Report 5369579-X (Version None)
Quarter: 2007Q2

REPORT INFORMATION
  Report Type: 
  Country: None (occurrence: None)
  Receive Date: 20070625
  Receipt Date: 20070614
  Transmission Date: 20071010
  Serious: Yes (Hospitalization)
  Sender: FDA-Public Use
  Company Number: AU-PFIZER INC-2006092640

PATIENT
  Sex: Male

DRUGS (2)
  1. SU-011,248 [Suspect]
     Indication: RENAL CELL CARCINOMA STAGE UNSPECIFIED
     Route: 048
  2. SU-011,248 [Suspect]
     Route: 048
     Dates: start: 20060714, end: 20060724

REACTIONS (1)
  - SEPSIS [None]
